FAERS Safety Report 17256608 (Version 1)
Quarter: 2019Q4

REPORT INFORMATION
  Report Type: Spontaneous
  Country: US (occurrence: US)
  Receive Date: 20191216
  Receipt Date: 20191216
  Transmission Date: 20200122
  Serious: No
  Sender: FDA-Public Use
  Company Number: None

PATIENT
  Age: 58 Year
  Sex: Male

DRUGS (3)
  1. VALPROIC ACID (VALPROIC ACID 250MG/5ML SOLN, ORAL) [Suspect]
     Active Substance: VALPROIC ACID
     Indication: SEIZURE
     Dosage: ?          OTHER DOSE:125/2.5 MG/ML;?
     Route: 048
     Dates: start: 20191118, end: 20191121
  2. VALPROIC ACID (VALPROIC ACID 250MG/5ML SOLN, ORAL) [Suspect]
     Active Substance: VALPROIC ACID
     Indication: MAJOR DEPRESSION
     Dosage: ?          OTHER DOSE:125/2.5 MG/ML;?
     Route: 048
     Dates: start: 20191118, end: 20191121
  3. FUROSEMIDE (FUROSEMIDE 40MG TAB) [Suspect]
     Active Substance: FUROSEMIDE
     Indication: HYPERTENSION
     Route: 048
     Dates: start: 20191119, end: 20191121

REACTIONS (2)
  - Drug eruption [None]
  - Rash [None]

NARRATIVE: CASE EVENT DATE: 20191126
